FAERS Safety Report 9752173 (Version 1)
Quarter: 2013Q4

REPORT INFORMATION
  Report Type: Spontaneous
  Country: FR (occurrence: FR)
  Receive Date: 20131213
  Receipt Date: 20131213
  Transmission Date: 20140711
  Serious: Yes (Hospitalization)
  Sender: FDA-Public Use
  Company Number: FR-ROCHE-1318359

PATIENT
  Age: 60 Year
  Sex: Female

DRUGS (10)
  1. ROACTEMRA [Suspect]
     Indication: RHEUMATOID ARTHRITIS
     Dosage: 20 MG/ML
     Route: 041
     Dates: start: 200901, end: 20120209
  2. ROACTEMRA [Suspect]
     Route: 065
     Dates: start: 201106
  3. METOJECT [Concomitant]
     Dosage: 10 MG/ML
     Route: 065
  4. CORTANCYL [Concomitant]
  5. SPECIAFOLDINE [Concomitant]
  6. LYRICA [Concomitant]
  7. MICARDIS [Concomitant]
  8. TAHOR [Concomitant]
  9. IXPRIM [Concomitant]
  10. POTASSIUM CITRATE [Concomitant]

REACTIONS (1)
  - Nephrocalcinosis [Not Recovered/Not Resolved]
